FAERS Safety Report 25248740 (Version 1)
Quarter: 2025Q2

REPORT INFORMATION
  Report Type: Report from Study
  Country: US (occurrence: US)
  Receive Date: 20250429
  Receipt Date: 20250429
  Transmission Date: 20250716
  Serious: Yes (Other)
  Sender: TAKEDA
  Company Number: US-TAKEDA-2025TUS017842

PATIENT
  Sex: Female
  Weight: 63 kg

DRUGS (13)
  1. HUMAN IMMUNOGLOBULIN G [Suspect]
     Active Substance: HUMAN IMMUNOGLOBULIN G
     Indication: Hypergammaglobulinaemia
     Dosage: 13 GRAM, Q2WEEKS
     Dates: start: 20250212
  2. HUMAN IMMUNOGLOBULIN G [Suspect]
     Active Substance: HUMAN IMMUNOGLOBULIN G
     Indication: Immune system disorder
     Dosage: UNK, Q2WEEKS
     Dates: start: 202502
  3. HUMAN IMMUNOGLOBULIN G [Suspect]
     Active Substance: HUMAN IMMUNOGLOBULIN G
     Indication: Immunodeficiency
  4. ACETAMINOPHEN [Concomitant]
     Active Substance: ACETAMINOPHEN
  5. EPINEPHRINE [Concomitant]
     Active Substance: EPINEPHRINE
  6. ZINC [Concomitant]
     Active Substance: ZINC
  7. ZYRTEC [Concomitant]
     Active Substance: CETIRIZINE HYDROCHLORIDE
     Indication: Allergic sinusitis
     Dosage: 10 MILLIGRAM, QD
  8. MAGNESIUM [Concomitant]
     Active Substance: MAGNESIUM
  9. ALBUTEROL SULFATE [Concomitant]
     Active Substance: ALBUTEROL SULFATE
  10. LIDOCAINE [Concomitant]
     Active Substance: LIDOCAINE
  11. RYALTRIS [Concomitant]
     Active Substance: MOMETASONE FUROATE MONOHYDRATE\OLOPATADINE HYDROCHLORIDE
     Indication: Allergic sinusitis
     Dosage: UNK, BID
  12. DIPHENHYDRAMINE HYDROCHLORIDE [Concomitant]
     Active Substance: DIPHENHYDRAMINE HYDROCHLORIDE
  13. BENZONATATE [Concomitant]
     Active Substance: BENZONATATE

REACTIONS (8)
  - Migraine [Recovered/Resolved]
  - Epistaxis [Recovered/Resolved]
  - Infusion site erythema [Unknown]
  - Infusion site pruritus [Recovering/Resolving]
  - Infusion site swelling [Unknown]
  - Diarrhoea [Recovered/Resolved]
  - Dizziness [Unknown]
  - Headache [Unknown]
